FAERS Safety Report 24686138 (Version 1)
Quarter: 2024Q4

REPORT INFORMATION
  Report Type: Spontaneous
  Country: US (occurrence: None)
  Receive Date: 20241127
  Receipt Date: 20241127
  Transmission Date: 20250114
  Serious: Yes (Other)
  Sender: Public
  Company Number: None

PATIENT
  Age: 65 Year
  Sex: Female
  Weight: 69.3 kg

DRUGS (6)
  1. PROLIA [Suspect]
     Active Substance: DENOSUMAB
     Indication: Osteoporosis
     Dates: start: 20240915
  2. EVENITY [Suspect]
     Active Substance: ROMOSOZUMAB-AQQG
  3. RINVOQ [Concomitant]
     Active Substance: UPADACITINIB
  4. VEOZAH [Concomitant]
     Active Substance: FEZOLINETANT
  5. CALCIUM [Concomitant]
     Active Substance: CALCIUM
  6. VITAMIN D [Concomitant]
     Active Substance: VITAMIN D NOS

REACTIONS (5)
  - Bone loss [None]
  - Dental implant removal [None]
  - Bone graft [None]
  - Economic problem [None]
  - Product communication issue [None]

NARRATIVE: CASE EVENT DATE: 20240915
